FAERS Safety Report 6841390-X (Version None)
Quarter: 2010Q3

REPORT INFORMATION
  Report Type: 
  Country: None (occurrence: None)
  Receive Date: 20100714
  Receipt Date: 20071003
  Transmission Date: 20110219
  Serious: No
  Sender: FDA-Public Use
  Company Number: US-PFIZER INC-2007054549

PATIENT
  Sex: Female
  Weight: 58.1 kg

DRUGS (1)
  1. CHANTIX [Suspect]
     Indication: TOBACCO USER
     Route: 048
     Dates: start: 20070207

REACTIONS (2)
  - ARTHRALGIA [None]
  - MYALGIA [None]
